FAERS Safety Report 4356492-X (Version None)
Quarter: 2004Q2

REPORT INFORMATION
  Report Type: 
  Country: None (occurrence: None)
  Receive Date: 20040506
  Receipt Date: 20040426
  Transmission Date: 20050107
  Serious: Yes (Hospitalization)
  Sender: FDA-Public Use
  Company Number: US-JNJFOC-20040405824

PATIENT
  Age: 62 Year
  Sex: Female
  Weight: 88.4514 kg

DRUGS (6)
  1. INFLIXIMAB           (INFLIXIMAB, RECOMBINANT) [Suspect]
     Indication: RHEUMATOID ARTHRITIS
     Dosage: INTRAVENOUS
     Route: 042
     Dates: start: 20001006
  2. TRAZODONE HCL [Concomitant]
  3. DYAZIDE [Concomitant]
  4. NEXIUM [Concomitant]
  5. ZYRTEC [Concomitant]
  6. ENBREL [Concomitant]

REACTIONS (4)
  - BLOOD CREATININE INCREASED [None]
  - BLOOD UREA INCREASED [None]
  - ELECTROCARDIOGRAM Q WAVES [None]
  - PALPITATIONS [None]
